FAERS Safety Report 8146073-4 (Version None)
Quarter: 2012Q1

REPORT INFORMATION
  Report Type: 
  Country: None (occurrence: None)
  Receive Date: 20120217
  Receipt Date: 20111101
  Transmission Date: 20120608
  Serious: No
  Sender: FDA-Public Use
  Company Number: US-ABBOTT-11P-163-0870196-00

PATIENT
  Sex: Female
  Weight: 94.886 kg

DRUGS (3)
  1. ASPIRIN [Concomitant]
     Indication: PRODUCT USED FOR UNKNOWN INDICATION
  2. SYNTHROID [Concomitant]
     Indication: PRODUCT USED FOR UNKNOWN INDICATION
  3. SIMCOR [Suspect]
     Indication: HIGH DENSITY LIPOPROTEIN DECREASED
     Dates: start: 20111014

REACTIONS (7)
  - FLUSHING [None]
  - FEELING ABNORMAL [None]
  - FORMICATION [None]
  - RESPIRATORY DISORDER [None]
  - ENERGY INCREASED [None]
  - BURNING SENSATION [None]
  - THERAPEUTIC RESPONSE UNEXPECTED [None]
